FAERS Safety Report 7825622-7 (Version None)
Quarter: 2011Q4

REPORT INFORMATION
  Report Type: 
  Country: None (occurrence: None)
  Receive Date: 20111019
  Receipt Date: 20111012
  Transmission Date: 20120403
  Serious: Yes (Other)
  Sender: FDA-Public Use
  Company Number: PHHY2011GB89974

PATIENT
  Age: 52 Year
  Sex: Male
  Weight: 86 kg

DRUGS (10)
  1. LOSARTAN POTASSIUM [Concomitant]
     Dosage: UNK
     Dates: start: 20110728
  2. TIOPRONIN [Concomitant]
     Dosage: UNK
     Dates: start: 20110728
  3. CANDESARTAN CILEXETIL [Concomitant]
     Dosage: UNK
     Dates: start: 20110610
  4. LAXIDO [Concomitant]
     Dosage: UNK
     Dates: start: 20110801, end: 20110811
  5. SIMVASTATIN [Concomitant]
     Dosage: UNK
     Dates: start: 20110610
  6. LANSOPRAZOLE [Concomitant]
     Dosage: UNK
     Dates: start: 20110610
  7. VENTOLIN [Concomitant]
     Dosage: UNK
     Dates: start: 20110610
  8. AMOXICILLIN AND CLAVULANATE POTASSIUM [Suspect]
     Dosage: UNK
     Route: 048
     Dates: start: 20111005
  9. PREDNISOLONE [Concomitant]
     Dosage: UNK
     Dates: start: 20110831, end: 20110914
  10. CETIRIZINE HCL [Concomitant]
     Dosage: UNK
     Dates: start: 20111005

REACTIONS (2)
  - RASH [None]
  - SWELLING [None]
